FAERS Safety Report 22267413 (Version 1)
Quarter: 2023Q2

REPORT INFORMATION
  Report Type: Spontaneous
  Country: US (occurrence: US)
  Receive Date: 20230428
  Receipt Date: 20230428
  Transmission Date: 20230722
  Serious: No
  Sender: FDA-Public Use
  Company Number: US-Teikoku Pharma USA-TPU2023-00191

PATIENT
  Sex: Female

DRUGS (4)
  1. LIDOCAINE [Suspect]
     Active Substance: LIDOCAINE
     Indication: Osteoarthritis
  2. LIDOCAINE [Suspect]
     Active Substance: LIDOCAINE
     Indication: Rheumatoid arthritis
  3. LIDODERM [Suspect]
     Active Substance: LIDOCAINE
     Indication: Osteoarthritis
  4. LIDODERM [Suspect]
     Active Substance: LIDOCAINE
     Indication: Rheumatoid arthritis

REACTIONS (4)
  - Drug ineffective for unapproved indication [Unknown]
  - Wheelchair user [Not Recovered/Not Resolved]
  - Pain [Not Recovered/Not Resolved]
  - Mobility decreased [Not Recovered/Not Resolved]
